FAERS Safety Report 6330749-5 (Version None)
Quarter: 2009Q3

REPORT INFORMATION
  Report Type: 
  Country: None (occurrence: None)
  Receive Date: 20090827
  Receipt Date: 20090821
  Transmission Date: 20100115
  Serious: Yes (Death)
  Sender: FDA-Public Use
  Company Number: US-ASTRAZENECA-2009SE09306

PATIENT
  Age: 912 Month
  Sex: Female

DRUGS (10)
  1. ARIMIDEX [Suspect]
     Indication: BREAST CANCER
     Route: 048
     Dates: start: 20060118
  2. ASPIRIN [Suspect]
  3. NORVASC [Suspect]
  4. GLIBENCLAMIDE [Suspect]
  5. METFORMIN HCL [Suspect]
  6. HYDROCHLOROTHIAZIDE [Suspect]
  7. CALCIUM WITH VITAMIN D [Suspect]
  8. COZAAR [Suspect]
  9. SYNTHROID [Suspect]
  10. BONIVA [Suspect]

REACTIONS (2)
  - CARDIAC ARREST [None]
  - MYOCARDIAL INFARCTION [None]
